FAERS Safety Report 8214875-1 (Version None)
Quarter: 2012Q1

REPORT INFORMATION
  Report Type: 
  Country: None (occurrence: None)
  Receive Date: 20120316
  Receipt Date: 20120308
  Transmission Date: 20120608
  Serious: Yes (Hospitalization)
  Sender: FDA-Public Use
  Company Number: DE-JNJFOC-20120211281

PATIENT
  Age: 41 Year
  Sex: Male

DRUGS (3)
  1. MELPERON [Interacting]
     Indication: SCHIZOPHRENIA
     Route: 048
     Dates: start: 20110715, end: 20110804
  2. RISPERDAL [Suspect]
     Indication: SCHIZOPHRENIA
     Route: 048
     Dates: start: 20110721, end: 20110728
  3. LORAZEPAM [Concomitant]
     Route: 048
     Dates: start: 20110715, end: 20110729

REACTIONS (2)
  - DRUG INTERACTION [None]
  - AKATHISIA [None]
